FAERS Safety Report 24218480 (Version 3)
Quarter: 2024Q3

REPORT INFORMATION
  Report Type: Spontaneous
  Country: JP (occurrence: JP)
  Receive Date: 20240816
  Receipt Date: 20240927
  Transmission Date: 20241016
  Serious: Yes (Life-Threatening, Hospitalization)
  Sender: LANTHEUS MEDICAL IMAGING
  Company Number: JP-LANTHEUS-LMI-2024-01006

PATIENT
  Age: 77 Year
  Sex: Male
  Weight: 66.4 kg

DRUGS (9)
  1. CARDIOLITE [Suspect]
     Active Substance: TECHNETIUM TC-99M SESTAMIBI
     Indication: Scan myocardial perfusion
     Dosage: 370 MEGABECQUEREL, SINGLE
     Route: 042
     Dates: start: 20240806, end: 20240806
  2. CARDIOLITE [Suspect]
     Active Substance: TECHNETIUM TC-99M SESTAMIBI
     Indication: Myocardial ischaemia
  3. ADENOSINE [Suspect]
     Active Substance: ADENOSINE
     Indication: Scan myocardial perfusion
     Dosage: 8 MILLILITRE, SINGLE
     Route: 042
     Dates: start: 20240806, end: 20240806
  4. ADENOSINE [Suspect]
     Active Substance: ADENOSINE
     Indication: Myocardial ischaemia
  5. ASPIRIN [Concomitant]
     Active Substance: ASPIRIN
     Indication: Coronary artery stenosis
     Dosage: 1 DOSAGE FORM, QD
     Route: 048
  6. LANSOPRAZOLE [Concomitant]
     Active Substance: LANSOPRAZOLE
     Indication: Gastritis
     Dosage: 1 DOSAGE FORM, QD
     Route: 048
  7. ROSUVASTATIN CALCIUM [Concomitant]
     Active Substance: ROSUVASTATIN CALCIUM
     Indication: Dyslipidaemia
     Dosage: 1 DOSAGE FORM, QD
     Route: 048
  8. TENELIGLIPTIN [Concomitant]
     Active Substance: TENELIGLIPTIN
     Indication: Diabetes mellitus
     Dosage: 1 DOSAGE FORM, QD
     Route: 048
  9. UMECLIDINIUM BROMIDE\VILANTEROL TRIFENATATE [Concomitant]
     Active Substance: UMECLIDINIUM BROMIDE\VILANTEROL TRIFENATATE
     Indication: Chronic obstructive pulmonary disease
     Route: 055

REACTIONS (3)
  - Cardiac arrest [Recovered/Resolved]
  - Cough [Recovered/Resolved]
  - Dyspnoea [Recovered/Resolved]

NARRATIVE: CASE EVENT DATE: 20240806
